FAERS Safety Report 9387421 (Version 1)
Quarter: 2013Q3

REPORT INFORMATION
  Report Type: Spontaneous
  Country: US (occurrence: None)
  Receive Date: 20130703
  Receipt Date: 20130703
  Transmission Date: 20140515
  Serious: Yes (Other)
  Sender: FDA-Public Use
  Company Number: None

PATIENT
  Age: 67 Year
  Sex: Female
  Weight: 98.88 kg

DRUGS (2)
  1. PRADAXA [Suspect]
     Indication: ATRIAL FIBRILLATION
  2. PRADAXA [Suspect]

REACTIONS (15)
  - Diarrhoea [None]
  - Haemorrhage [None]
  - Faeces discoloured [None]
  - Arthralgia [None]
  - Pain [None]
  - Headache [None]
  - Dizziness [None]
  - Asthenia [None]
  - Dyspepsia [None]
  - Abdominal discomfort [None]
  - Dyspepsia [None]
  - Abdominal pain upper [None]
  - Hypersensitivity [None]
  - Chromaturia [None]
  - Haematemesis [None]
